FAERS Safety Report 16289882 (Version 1)
Quarter: 2019Q2

REPORT INFORMATION
  Report Type: Other
  Country: GB (occurrence: GB)
  Receive Date: 20190509
  Receipt Date: 20190509
  Transmission Date: 20190711
  Serious: Yes (Other)
  Sender: FDA-Public Use
  Company Number: GB-MACLEODS PHARMACEUTICALS US LTD-MAC2019021162

PATIENT

DRUGS (6)
  1. LAMIVUDINE. [Suspect]
     Active Substance: LAMIVUDINE
     Indication: HIV INFECTION
     Dosage: UNK, 1 COURSE, DURING FIRST TRIMESTER
     Route: 048
     Dates: start: 20090101, end: 20100610
  2. ZIDOVUDINE. [Suspect]
     Active Substance: ZIDOVUDINE
     Indication: HIV INFECTION
     Dosage: UNK, 1 COURSE, DURING FIRST TRIMESTER
     Route: 048
     Dates: start: 20090110, end: 20100610
  3. NEVIRAPINE. [Suspect]
     Active Substance: NEVIRAPINE
     Indication: HIV INFECTION
     Dosage: UNK, 1 COURSE, DURING FIRST TRIMESTER
     Route: 048
     Dates: start: 20090101, end: 20100610
  4. ISENTRESS [Suspect]
     Active Substance: RALTEGRAVIR POTASSIUM
     Indication: HIV INFECTION
     Dosage: 800 MILLIGRAM, QD, 1 COURSE DURING THIRD TRIMESTER
     Route: 048
     Dates: start: 20100610
  5. VIREAD [Suspect]
     Active Substance: TENOFOVIR DISOPROXIL FUMARATE
     Indication: HIV INFECTION
     Dosage: UNK, 1 COURSE OF TAB/CAP, DURING THIRD TRIMESTER
     Route: 048
     Dates: start: 20100610
  6. KALETRA [Suspect]
     Active Substance: LOPINAVIR\RITONAVIR
     Indication: HIV INFECTION
     Dosage: UNK, 1 COURSE DURING THIRD TRIMESTER
     Route: 048
     Dates: start: 20100610

REACTIONS (1)
  - Maternal exposure during pregnancy [Unknown]
